FAERS Safety Report 15203854 (Version 1)
Quarter: 2018Q3

REPORT INFORMATION
  Report Type: Spontaneous
  Country: US (occurrence: US)
  Receive Date: 20180726
  Receipt Date: 20180726
  Transmission Date: 20181010
  Serious: No
  Sender: FDA-Public Use
  Company Number: US-AMNEAL PHARMACEUTICALS-2017AMN01031

PATIENT
  Sex: Female
  Weight: 58.96 kg

DRUGS (1)
  1. TRAMADOL HYDROCHLORIDE. [Suspect]
     Active Substance: TRAMADOL HYDROCHLORIDE
     Indication: PAIN
     Dosage: 2 TABLETS, 4X/DAY
     Route: 048
     Dates: start: 20171124, end: 20171125

REACTIONS (6)
  - Nonspecific reaction [Unknown]
  - Muscle twitching [Unknown]
  - Hot flush [Unknown]
  - Vertigo [Unknown]
  - Chills [Unknown]
  - Nausea [Unknown]
